FAERS Safety Report 19310154 (Version 1)
Quarter: 2021Q2

REPORT INFORMATION
  Report Type: Spontaneous
  Country: US (occurrence: US)
  Receive Date: 20210526
  Receipt Date: 20210526
  Transmission Date: 20210717
  Serious: No
  Sender: FDA-Public Use
  Company Number: US-GLAUKOS-AVE-2021-0075-AE

PATIENT

DRUGS (1)
  1. AVEDRO CROSS?LINKING PRODUCT(S), UNSPECIFIED [Suspect]
     Active Substance: RIBOFLAVIN 5^-PHOSPHATE SODIUM
     Route: 047

REACTIONS (6)
  - Glare [Not Recovered/Not Resolved]
  - Eye infection [Unknown]
  - Visual impairment [Not Recovered/Not Resolved]
  - Eye pain [Recovered/Resolved]
  - Dry eye [Not Recovered/Not Resolved]
  - Corneal opacity [Not Recovered/Not Resolved]
